FAERS Safety Report 5574990-8 (Version None)
Quarter: 2007Q4

REPORT INFORMATION
  Report Type: 
  Country: None (occurrence: None)
  Receive Date: 20071227
  Receipt Date: 20071218
  Transmission Date: 20080405
  Serious: Yes (Hospitalization)
  Sender: FDA-Public Use
  Company Number: B0500896A

PATIENT
  Age: 6 Year
  Sex: Female
  Weight: 20 kg

DRUGS (8)
  1. FORTUM [Suspect]
     Indication: PROPHYLAXIS
     Dosage: 3G PER DAY
     Route: 042
     Dates: end: 20071011
  2. ETOPOSIDE [Suspect]
     Dosage: 1200MG PER DAY
     Route: 042
     Dates: start: 20071005, end: 20071005
  3. LARGACTIL [Suspect]
     Indication: PROPHYLAXIS
     Dosage: 10MG PER DAY
     Route: 042
     Dates: start: 20071005, end: 20071007
  4. NUBAIN [Suspect]
     Indication: ANALGESIA
     Dosage: 4MG SIX TIMES PER DAY
     Route: 042
     Dates: end: 20071007
  5. VOGALENE [Suspect]
     Indication: PROPHYLAXIS
     Dosage: 20MG PER DAY
     Route: 042
     Dates: start: 20071005, end: 20071009
  6. SPASFON [Concomitant]
     Indication: ABDOMINAL PAIN
     Route: 042
  7. PERFALGAN [Concomitant]
     Dosage: 12G PER DAY
     Route: 042
  8. DELURSAN [Concomitant]
     Route: 065

REACTIONS (8)
  - ANURIA [None]
  - BLOOD CREATININE INCREASED [None]
  - CREATININE RENAL CLEARANCE DECREASED [None]
  - HYPONATRAEMIA [None]
  - NEPHRITIS [None]
  - OEDEMA [None]
  - RENAL FAILURE ACUTE [None]
  - URINARY RETENTION [None]
